FAERS Safety Report 4970997-X (Version None)
Quarter: 2006Q2

REPORT INFORMATION
  Report Type: 
  Country: None (occurrence: None)
  Receive Date: 20060412
  Receipt Date: 20060201
  Transmission Date: 20061013
  Serious: Yes (Hospitalization, Other)
  Sender: FDA-Public Use
  Company Number: PHHO2006JP02073

PATIENT
  Age: 66 Year
  Sex: Male

DRUGS (7)
  1. ISOSORBIDE MONONITRATE [Concomitant]
     Indication: ANGINA PECTORIS
     Dosage: 40 MG/DAY
     Route: 048
     Dates: start: 20051219
  2. ASPARA K [Concomitant]
     Indication: BLOOD POTASSIUM DECREASED
     Dosage: 2.4 G/DAY
     Route: 048
     Dates: start: 20060119
  3. SAT [Concomitant]
     Indication: THROMBOSIS PROPHYLAXIS
  4. LOCHOL [Suspect]
     Indication: HYPERCHOLESTEROLAEMIA
     Dosage: 20 MG, QD
     Route: 048
     Dates: start: 20051222, end: 20060126
  5. ASPIRIN [Concomitant]
     Indication: ANGINA PECTORIS
     Dosage: 100 MG/DAY
     Route: 048
     Dates: start: 20051219
  6. CONIEL [Concomitant]
     Indication: HYPERTENSION
     Dosage: 4 MG/DAY
     Route: 048
     Dates: start: 20051222
  7. PANALDINE [Concomitant]
     Indication: POSTOPERATIVE ANALGESIA
     Dosage: 100 MG/DAY
     Route: 048
     Dates: start: 20060116

REACTIONS (10)
  - ALANINE AMINOTRANSFERASE INCREASED [None]
  - ASPARTATE AMINOTRANSFERASE INCREASED [None]
  - BLOOD LACTATE DEHYDROGENASE INCREASED [None]
  - CORONARY ARTERY SURGERY [None]
  - DIFFICULTY IN WALKING [None]
  - ECZEMA [None]
  - GAMMA-GLUTAMYLTRANSFERASE INCREASED [None]
  - HEPATIC FUNCTION ABNORMAL [None]
  - MUSCULAR WEAKNESS [None]
  - MYALGIA [None]
